FAERS Safety Report 19199940 (Version 2)
Quarter: 2021Q2

REPORT INFORMATION
  Report Type: Spontaneous
  Country: US (occurrence: US)
  Receive Date: 20210430
  Receipt Date: 20210507
  Transmission Date: 20210717
  Serious: Yes (Hospitalization, Other)
  Sender: FDA-Public Use
  Company Number: US-PFIZER INC-2021458357

PATIENT
  Age: 15 Year
  Sex: Female

DRUGS (2)
  1. AMLODIPINE BESILATE [Suspect]
     Active Substance: AMLODIPINE BESYLATE
     Dosage: 500 MG
     Route: 048
  2. BENAZEPRIL [Suspect]
     Active Substance: BENAZEPRIL HYDROCHLORIDE
     Dosage: 1000 MG
     Route: 048

REACTIONS (3)
  - Shock [Recovered/Resolved]
  - Toxicity to various agents [Recovered/Resolved]
  - Intentional overdose [Recovered/Resolved]
